FAERS Safety Report 16946039 (Version 1)
Quarter: 2019Q4

REPORT INFORMATION
  Report Type: Spontaneous
  Country: US (occurrence: US)
  Receive Date: 20190830
  Receipt Date: 20190830
  Transmission Date: 20200122
  Serious: Yes (Other)
  Sender: FDA-Public Use
  Company Number: None

PATIENT
  Age: 63 Year
  Sex: Female

DRUGS (1)
  1. TYMLOS [Suspect]
     Active Substance: ABALOPARATIDE
     Indication: SENILE OSTEOPOROSIS
     Route: 058
     Dates: start: 20190808

REACTIONS (4)
  - Throat tightness [None]
  - Feeling hot [None]
  - Heart rate increased [None]
  - Productive cough [None]

NARRATIVE: CASE EVENT DATE: 20190815
